FAERS Safety Report 12541286 (Version 1)
Quarter: 2016Q3

REPORT INFORMATION
  Report Type: Spontaneous
  Country: US (occurrence: US)
  Receive Date: 20160708
  Receipt Date: 20160708
  Transmission Date: 20161109
  Serious: No
  Sender: FDA-Public Use
  Company Number: US-009507513-1606USA014049

PATIENT
  Sex: Female

DRUGS (1)
  1. RAGWITEK [Suspect]
     Active Substance: AMBROSIA ARTEMISIIFOLIA POLLEN
     Indication: SEASONAL ALLERGY
     Dosage: 12 AMB A 1-U/ ONCE DAILY
     Route: 060
     Dates: start: 201605

REACTIONS (4)
  - Application site irritation [Recovering/Resolving]
  - Gingival swelling [Recovering/Resolving]
  - Application site swelling [Recovering/Resolving]
  - Gingival pain [Recovering/Resolving]

NARRATIVE: CASE EVENT DATE: 2016
